FAERS Safety Report 23947085 (Version 7)
Quarter: 2025Q3

REPORT INFORMATION
  Report Type: Spontaneous
  Country: BR (occurrence: BR)
  Receive Date: 20240606
  Receipt Date: 20250801
  Transmission Date: 20251021
  Serious: Yes (Hospitalization, Other)
  Sender: APELLIS PHARMACEUTICALS
  Company Number: BR-BIOVITRUM-2024-BR-007584

PATIENT
  Weight: 60 kg

DRUGS (3)
  1. EMPAVELI [Suspect]
     Active Substance: PEGCETACOPLAN
     Indication: Product used for unknown indication
     Route: 065
  2. EMPAVELI [Suspect]
     Active Substance: PEGCETACOPLAN
  3. CYCLOSPORINE [Concomitant]
     Active Substance: CYCLOSPORINE
     Indication: Aplastic anaemia

REACTIONS (9)
  - Oxygen saturation decreased [Unknown]
  - Renal impairment [Unknown]
  - Pyrexia [Unknown]
  - Jaundice [Unknown]
  - Abdominal distension [Unknown]
  - Skin discolouration [Unknown]
  - Oedema peripheral [Unknown]
  - Decreased appetite [Unknown]
  - Dehydration [Unknown]

NARRATIVE: CASE EVENT DATE: 20240519
